FAERS Safety Report 17134293 (Version 1)
Quarter: 2019Q4

REPORT INFORMATION
  Report Type: Report from Study
  Country: US (occurrence: US)
  Receive Date: 20191210
  Receipt Date: 20191210
  Transmission Date: 20200122
  Serious: Yes (Hospitalization, Disabling, Other)
  Sender: FDA-Public Use
  Company Number: US-MYLANLABS-2019M1112430

PATIENT
  Age: 18 Year
  Sex: Female
  Weight: 57.9 kg

DRUGS (56)
  1. MERCAPTOPURINE. [Suspect]
     Active Substance: MERCAPTOPURINE
     Dosage: 25 MILLIGRAM, QD
     Route: 048
     Dates: start: 201809, end: 201906
  2. MERCAPTOPURINE. [Suspect]
     Active Substance: MERCAPTOPURINE
     Dosage: 25 MILLIGRAM, QD
     Route: 048
     Dates: start: 20171201, end: 201807
  3. HUMIRA [Suspect]
     Active Substance: ADALIMUMAB
     Dosage: 160 MILLIGRAM, ONCE (RESTARTING INDUCTION)
     Route: 058
     Dates: start: 20190420, end: 20190420
  4. EUGYNON                            /00022701/ [Concomitant]
     Indication: DYSMENORRHOEA
     Dosage: 1 DOSAGE FORM, QD
     Route: 048
     Dates: start: 2018
  5. USTEKINUMAB [Concomitant]
     Active Substance: USTEKINUMAB
     Dosage: 90 MILLIGRAM, BIMONTHLY (1 IN 8 WK)
     Route: 042
     Dates: start: 2019
  6. HUMIRA [Suspect]
     Active Substance: ADALIMUMAB
     Dosage: 80 MILLIGRAM, ONCE
     Route: 058
     Dates: start: 20190507, end: 20190507
  7. FLUDROCORTISONE [Concomitant]
     Active Substance: FLUDROCORTISONE
     Indication: SYNCOPE
     Dosage: 0.05 MILLIGRAM, Q2D
     Route: 048
     Dates: start: 20171107
  8. RANITIDINE. [Concomitant]
     Active Substance: RANITIDINE
     Indication: GASTROOESOPHAGEAL REFLUX DISEASE
     Dosage: 150 MILLIGRAM, PRN
     Route: 048
     Dates: start: 20160219
  9. ACETAMINOPHEN W/CAFFEINE [Concomitant]
     Active Substance: ACETAMINOPHEN\CAFFEINE
     Indication: TENSION HEADACHE
     Dosage: 1 DOSAGE FORM, PRN
     Route: 048
     Dates: start: 20150527, end: 2019
  10. SERTRALINE [Concomitant]
     Active Substance: SERTRALINE HYDROCHLORIDE
     Dosage: 125 MILLIGRAM, QD
     Route: 048
     Dates: start: 2019, end: 2019
  11. ACETAMINOFEN [Concomitant]
     Active Substance: ACETAMINOPHEN
     Indication: PYREXIA
     Dosage: 500 MILLIGRAM, PRN
     Route: 048
     Dates: start: 20180423, end: 20180426
  12. CHOLECALCIFEROL [Concomitant]
     Active Substance: CHOLECALCIFEROL
     Indication: CROHN^S DISEASE
     Dosage: 3000 DOSAGE FORM, QD
     Route: 048
     Dates: start: 20110401, end: 20120705
  13. GLUCAGON. [Concomitant]
     Active Substance: GLUCAGON
     Indication: GASTROINTESTINAL DISORDER
     Dosage: 0.5 MILLIGRAM, ONCE
     Route: 042
     Dates: start: 20190419
  14. HUMIRA [Suspect]
     Active Substance: ADALIMUMAB
     Dosage: 5.174 MILLIGRAM, QW
     Route: 058
     Dates: start: 20130508, end: 20180417
  15. HYDROCORTISONE. [Concomitant]
     Active Substance: HYDROCORTISONE
     Dosage: UNK
     Route: 054
  16. ALBUTEROL                          /00139501/ [Concomitant]
     Active Substance: ALBUTEROL
     Indication: WHEEZING
     Dosage: 3 PUFF, AS REQUIRED
     Dates: start: 20170809
  17. CETIRIZINE [Concomitant]
     Active Substance: CETIRIZINE HYDROCHLORIDE
     Indication: HYPERSENSITIVITY
     Dosage: 10 MILLIGRAM, QD
     Route: 048
     Dates: start: 20170807
  18. SERTRALINE [Concomitant]
     Active Substance: SERTRALINE HYDROCHLORIDE
     Indication: POST-TRAUMATIC STRESS DISORDER
     Dosage: 150 MILLIGRAM, QD
     Route: 048
     Dates: start: 2019, end: 2019
  19. ACETAMINOFEN [Concomitant]
     Active Substance: ACETAMINOPHEN
     Indication: PAIN
     Dosage: 825 MILLIGRAM, ONCE
     Route: 048
     Dates: start: 20180713, end: 20180713
  20. ACETAMINOFEN [Concomitant]
     Active Substance: ACETAMINOPHEN
     Dosage: 820 MILLIGRAM, ONCE
     Route: 042
     Dates: start: 20180712, end: 20180712
  21. ONDANSETRON [Concomitant]
     Active Substance: ONDANSETRON
     Indication: NAUSEA
     Dosage: 8 MILLIGRAM, PRN
     Route: 048
     Dates: start: 20150530
  22. ACETAMINOFEN [Concomitant]
     Active Substance: ACETAMINOPHEN
     Dosage: 1000 MILLIGRAM, PRN
     Route: 048
     Dates: start: 20190418
  23. METRONIDAZOLE. [Concomitant]
     Active Substance: METRONIDAZOLE
     Indication: FISTULA
     Dosage: 1000 MILLIGRAM, QD
     Route: 048
     Dates: start: 2018
  24. CEPHALEXIN                         /00145501/ [Concomitant]
     Active Substance: CEPHALEXIN
     Indication: IMPETIGO
     Dosage: 1500 MILLIGRAM, QD
     Route: 048
     Dates: start: 2019
  25. MERCAPTOPURINE. [Suspect]
     Active Substance: MERCAPTOPURINE
     Indication: CROHN^S DISEASE
     Dosage: 25 MILLIGRAM, QD
     Route: 048
     Dates: start: 20101213, end: 201807
  26. HUMIRA [Suspect]
     Active Substance: ADALIMUMAB
     Dosage: 40 MILLIGRAM, QW
     Route: 058
     Dates: start: 20180425, end: 20180705
  27. LACTOBACILLUS ACIDOPHILUS [Concomitant]
     Active Substance: LACTOBACILLUS ACIDOPHILUS
     Indication: IRRITABLE BOWEL SYNDROME
     Dosage: 1 DOSAGE FORM, BID
     Route: 048
     Dates: start: 20130320, end: 2019
  28. SERTRALINE [Concomitant]
     Active Substance: SERTRALINE HYDROCHLORIDE
     Indication: ANXIETY
     Dosage: 150 MILLIGRAM, QD
     Route: 048
     Dates: start: 20161209, end: 2018
  29. SERTRALINE [Concomitant]
     Active Substance: SERTRALINE HYDROCHLORIDE
     Dosage: 25 MILLIGRAM, QD
     Route: 048
     Dates: start: 20190419
  30. MUPIROCIN. [Concomitant]
     Active Substance: MUPIROCIN
     Indication: IMPETIGO
  31. BUSPIRONE [Concomitant]
     Active Substance: BUSPIRONE HYDROCHLORIDE
     Indication: ANXIETY
     Dosage: 30 MILLIGRAM, BID
     Route: 048
     Dates: start: 20190419
  32. TACROLIMUS. [Concomitant]
     Active Substance: TACROLIMUS
     Indication: FISTULA
     Dosage: 1 DOSAGE FORM, QD
     Route: 061
     Dates: start: 2019
  33. CLOBETASOL [Concomitant]
     Active Substance: CLOBETASOL
     Indication: DERMATITIS CONTACT
     Dosage: UNK, BID (APPLY SPARINGLY TO AFFECTED AREAS ON THE EARS)
     Route: 061
     Dates: start: 2019
  34. CIPROFLOXACIN. [Concomitant]
     Active Substance: CIPROFLOXACIN
     Indication: FISTULA
     Dosage: 1000 MILLIGRAM, QD
     Route: 048
     Dates: start: 2018
  35. CEFDINIR. [Concomitant]
     Active Substance: CEFDINIR
     Indication: ACUTE SINUSITIS
     Dosage: 300 MILLIGRAM, QD
     Dates: start: 2019
  36. SORBITOL. [Concomitant]
     Active Substance: SORBITOL
     Indication: MAGNETIC RESONANCE IMAGING
     Dosage: 900 MILLILITER
     Route: 048
     Dates: start: 20190419
  37. GADOBUTROL. [Concomitant]
     Active Substance: GADOBUTROL
     Indication: MAGNETIC RESONANCE IMAGING
     Dosage: 5.8 MILLILITER, ONCE
     Route: 042
     Dates: start: 20190419
  38. HUMIRA [Suspect]
     Active Substance: ADALIMUMAB
     Dosage: 40 MILLIGRAM, QW
     Route: 058
     Dates: start: 2018, end: 201903
  39. HUMIRA [Suspect]
     Active Substance: ADALIMUMAB
     Dosage: 40 MILLIGRAM, QW
     Route: 058
     Dates: start: 2019, end: 2019
  40. HYDROCORTISONE. [Concomitant]
     Active Substance: HYDROCORTISONE
     Indication: CROHN^S DISEASE
     Dosage: 1 DOSAGE FORM, BID
     Route: 061
     Dates: start: 20130220
  41. FLUOCINONIDE. [Concomitant]
     Active Substance: FLUOCINONIDE
     Indication: ECZEMA
     Dosage: 2 DOSAGE FORM, QD
     Route: 061
     Dates: start: 20170907
  42. PROPRANOLOL [Concomitant]
     Active Substance: PROPRANOLOL HYDROCHLORIDE
     Indication: TENSION HEADACHE
     Dosage: 60 MILLIGRAM, QD
     Route: 048
     Dates: start: 20170602
  43. SERTRALINE [Concomitant]
     Active Substance: SERTRALINE HYDROCHLORIDE
     Dosage: 100 MILLIGRAM, QD
     Route: 048
     Dates: start: 2019
  44. OXYCODONE [Concomitant]
     Active Substance: OXYCODONE
     Indication: PAIN
     Dosage: 5 MILLIGRAM, PRN
     Route: 048
     Dates: start: 20180715
  45. CHOLECALCIFEROL [Concomitant]
     Active Substance: CHOLECALCIFEROL
     Indication: VITAMIN D DECREASED
     Dosage: 2000 MILLIGRAM
     Route: 048
     Dates: start: 20121212, end: 20140916
  46. MUPIROCIN. [Concomitant]
     Active Substance: MUPIROCIN
     Indication: FOLLICULITIS
     Dosage: 3 DOSAGE FORM, TID
     Route: 061
     Dates: start: 2018
  47. USTEKINUMAB [Concomitant]
     Active Substance: USTEKINUMAB
     Indication: CROHN^S DISEASE
     Dosage: 390 MILLIGRAM, ONCE
     Route: 042
     Dates: start: 20190618, end: 20190618
  48. HUMIRA [Suspect]
     Active Substance: ADALIMUMAB
     Indication: CROHN^S DISEASE
     Dosage: 40 MILLIGRAM, QW
     Route: 058
     Dates: start: 20130508, end: 201903
  49. ACETAMINOPHEN W/CAFFEINE [Concomitant]
     Active Substance: ACETAMINOPHEN\CAFFEINE
     Dosage: 2 DOSAGE FORM, PRN
     Route: 048
     Dates: start: 2019, end: 2019
  50. ONDANSETRON [Concomitant]
     Active Substance: ONDANSETRON
     Indication: VOMITING
  51. SERTRALINE [Concomitant]
     Active Substance: SERTRALINE HYDROCHLORIDE
     Indication: DEPRESSION
     Dosage: 175 MILLIGRAM, QD
     Route: 048
     Dates: start: 2018, end: 2019
  52. TRIAMCINOLONE [Concomitant]
     Active Substance: TRIAMCINOLONE
     Indication: DERMATITIS
     Dosage: 1 DOSAGE FORM, PRN
     Route: 061
     Dates: start: 20160403
  53. NYSTATIN. [Concomitant]
     Active Substance: NYSTATIN
     Indication: SKIN IRRITATION
     Dosage: 1 DOSAGE FORM, PRN (USAGE WITH BAG CHANGES)
     Route: 061
     Dates: start: 2019
  54. CHOLECALCIFEROL [Concomitant]
     Active Substance: CHOLECALCIFEROL
     Dosage: 3000 DOSAGE FORM
     Route: 048
     Dates: start: 20191106
  55. FERRIC CARBOXYMALTOSE [Concomitant]
     Active Substance: FERRIC CARBOXYMALTOSE
     Indication: IRON DEFICIENCY ANAEMIA
     Dosage: 750 MILLIGRAM, ONCE
     Route: 042
     Dates: start: 20190513, end: 20190513
  56. AMOXICILLIN. [Concomitant]
     Active Substance: AMOXICILLIN
     Indication: IMPETIGO
     Dosage: 1750 MILLIGRAM, QD
     Route: 048
     Dates: start: 2018

REACTIONS (3)
  - Skin candida [Not Recovered/Not Resolved]
  - Hepatotoxicity [Not Recovered/Not Resolved]
  - Fistula [Not Recovered/Not Resolved]

NARRATIVE: CASE EVENT DATE: 2019
